FAERS Safety Report 16705732 (Version 2)
Quarter: 2019Q3

REPORT INFORMATION
  Report Type: Spontaneous
  Country: JP (occurrence: JP)
  Receive Date: 20190815
  Receipt Date: 20190904
  Transmission Date: 20191004
  Serious: Yes (Death, Hospitalization)
  Sender: FDA-Public Use
  Company Number: JP-BAYER-2019-120584

PATIENT
  Age: 8 Decade

DRUGS (14)
  1. KARY UNI [PIRENOXINE SODIUM] [Concomitant]
  2. AMLODIPINE [Concomitant]
     Active Substance: AMLODIPINE BESYLATE
  3. METHYCOBAL [Concomitant]
     Active Substance: METHYLCOBALAMIN
  4. BAYASPIRIN 100 MG [Concomitant]
     Active Substance: ASPIRIN
  5. NEXAVAR [Suspect]
     Active Substance: SORAFENIB
     Indication: RENAL CELL CARCINOMA
     Dosage: 400 MG, QD
     Route: 048
     Dates: start: 201811, end: 201811
  6. NEXAVAR [Suspect]
     Active Substance: SORAFENIB
     Indication: RENAL CELL CARCINOMA
     Dosage: 200 MG, QD
     Route: 048
     Dates: start: 201811, end: 201811
  7. TENORMIN [Concomitant]
     Active Substance: ATENOLOL
  8. BEZATOL [Concomitant]
     Active Substance: BEZAFIBRATE
  9. BIO-THREE [Concomitant]
     Active Substance: HERBALS
  10. HYALEIN [Concomitant]
     Active Substance: HYALURONATE SODIUM
  11. NEXAVAR [Suspect]
     Active Substance: SORAFENIB
     Indication: RENAL CELL CARCINOMA
     Dosage: 200 MG, QOD
     Route: 048
     Dates: start: 201811, end: 201905
  12. MAGMITT [Concomitant]
     Active Substance: MAGNESIUM OXIDE
  13. RHUBARB. [Concomitant]
     Active Substance: RHUBARB
  14. FERROUS SULFATE. [Concomitant]
     Active Substance: FERROUS SULFATE

REACTIONS (8)
  - Pneumonia herpes viral [Fatal]
  - Eyelid ptosis [Recovered/Resolved]
  - Hypoaesthesia [Recovered/Resolved]
  - Stomatitis [Recovered/Resolved]
  - Dyspnoea [Fatal]
  - Decreased appetite [Recovered/Resolved]
  - Herpes zoster [Not Recovered/Not Resolved]
  - Diarrhoea [Recovered/Resolved]

NARRATIVE: CASE EVENT DATE: 201811
